FAERS Safety Report 13099318 (Version 1)
Quarter: 2017Q1

REPORT INFORMATION
  Report Type: Report from Study
  Country: BR (occurrence: BR)
  Receive Date: 20170109
  Receipt Date: 20170109
  Transmission Date: 20170428
  Serious: Yes (Hospitalization, Other)
  Sender: FDA-Public Use
  Company Number: ALCN2017BR000474

PATIENT
  Sex: Female
  Weight: 60 kg

DRUGS (1)
  1. AZORGA [Suspect]
     Active Substance: BRINZOLAMIDE\TIMOLOL MALEATE
     Indication: GLAUCOMA
     Dosage: 1 GTT, BID
     Route: 047

REACTIONS (4)
  - Infection [Recovered/Resolved]
  - Blindness unilateral [Unknown]
  - Eye infection [Recovered/Resolved]
  - Eye pruritus [Recovered/Resolved]
